FAERS Safety Report 20330056 (Version 1)
Quarter: 2022Q1

REPORT INFORMATION
  Report Type: Spontaneous
  Country: AU (occurrence: AU)
  Receive Date: 20220113
  Receipt Date: 20220113
  Transmission Date: 20220423
  Serious: Yes (Other)
  Sender: FDA-Public Use
  Company Number: AU-ALKEM LABORATORIES LIMITED-AU-ALKEM-2021-08383

PATIENT
  Age: 98 Year
  Sex: Male

DRUGS (1)
  1. OLANZAPINE [Suspect]
     Active Substance: OLANZAPINE
     Indication: Product used for unknown indication
     Dosage: UNK
     Route: 065

REACTIONS (7)
  - Apnoea [Unknown]
  - Syncope [Unknown]
  - Agitation [Unknown]
  - Anxiety [Unknown]
  - Dyspnoea [Unknown]
  - Facial pain [Unknown]
  - Headache [Unknown]
